FAERS Safety Report 5707379-9 (Version None)
Quarter: 2008Q2

REPORT INFORMATION
  Report Type: 
  Country: None (occurrence: None)
  Receive Date: 20080416
  Receipt Date: 20080409
  Transmission Date: 20081010
  Serious: Yes (Other)
  Sender: FDA-Public Use
  Company Number: US-ASTRAZENECA-2006AC01703

PATIENT
  Age: 68 Year
  Sex: Male

DRUGS (9)
  1. LISINOPRIL [Suspect]
     Route: 048
  2. IRBESARTAN [Interacting]
     Route: 048
  3. AMLODIPINE BESYLATE [Concomitant]
     Route: 048
  4. CYANOCOBALAMIN [Concomitant]
     Route: 030
  5. FOLIC ACID [Concomitant]
     Route: 048
  6. GEMFIBROZIL [Concomitant]
     Route: 048
  7. METOPROLOL TARTRATE [Concomitant]
     Route: 048
  8. NITROGLYCERIN [Concomitant]
     Dosage: 0.4 MG/HR
  9. RANITIDINE HYDROCHLORIDE [Concomitant]
     Route: 048

REACTIONS (2)
  - ANGIOEDEMA [None]
  - DRUG INTERACTION [None]
